FAERS Safety Report 18385632 (Version 1)
Quarter: 2020Q4

REPORT INFORMATION
  Report Type: Spontaneous
  Country: US (occurrence: US)
  Receive Date: 20201015
  Receipt Date: 20201015
  Transmission Date: 20210114
  Serious: No
  Sender: FDA-Public Use
  Company Number: US-ASTRAZENECA-2020SF28302

PATIENT
  Sex: Female

DRUGS (1)
  1. BYETTA [Suspect]
     Active Substance: EXENATIDE
     Indication: DIABETES MELLITUS
     Dosage: TWICE DAILY FOR ABOUT A MONTH
     Route: 058
     Dates: start: 202008

REACTIONS (2)
  - Injection site haemorrhage [Unknown]
  - Device issue [Unknown]
